FAERS Safety Report 6598806-6 (Version None)
Quarter: 2010Q1

REPORT INFORMATION
  Report Type: 
  Country: None (occurrence: None)
  Receive Date: 20100224
  Receipt Date: 20100209
  Transmission Date: 20100710
  Serious: Yes (Other)
  Sender: FDA-Public Use
  Company Number: BR-MEDIMMUNE-MEDI-0010529

PATIENT
  Sex: Male
  Weight: 9.98 kg

DRUGS (6)
  1. SYNAGIS [Suspect]
     Route: 030
     Dates: start: 20080709
  2. DOMPERIDONE [Concomitant]
     Route: 048
  3. RANITIDINE [Concomitant]
     Route: 048
  4. BECLOMETASONE [Concomitant]
     Route: 048
     Dates: start: 20091101
  5. PHENOBARBITAL TAB [Concomitant]
     Route: 048
     Dates: start: 20090202
  6. OMEPRAZOLE [Concomitant]
     Route: 042

REACTIONS (5)
  - ANAEMIA [None]
  - PLEURAL EFFUSION [None]
  - PNEUMONIA [None]
  - PNEUMOTHORAX [None]
  - SEPSIS [None]
